FAERS Safety Report 6487968-7 (Version None)
Quarter: 2009Q4

REPORT INFORMATION
  Report Type: 
  Country: None (occurrence: None)
  Receive Date: 20091210
  Receipt Date: 20091126
  Transmission Date: 20100525
  Serious: Yes (Other)
  Sender: FDA-Public Use
  Company Number: NL-GILEAD-E2B_00000520

PATIENT
  Sex: Female

DRUGS (13)
  1. AMBRISENTAN [Suspect]
     Indication: PULMONARY ARTERIAL HYPERTENSION
     Dosage: 5MG PER DAY
     Route: 048
     Dates: start: 20090612, end: 20090616
  2. PREDNISOLONE [Concomitant]
     Indication: IMMUNOSUPPRESSION
     Dosage: 10MG PER DAY
     Route: 048
     Dates: start: 20050101
  3. TACROLIMUS [Concomitant]
     Indication: IMMUNOSUPPRESSION
     Dosage: 500MCG TWICE PER DAY
     Route: 048
     Dates: start: 20050101
  4. SILDENAFIL CITRATE [Concomitant]
     Indication: PULMONARY HYPERTENSION
     Dosage: 40MG EVERY 3 DAYS
     Route: 048
     Dates: start: 20030212
  5. URSODEOXYCHOLZUUR [Concomitant]
     Indication: HEPATIC CIRRHOSIS
     Dosage: 600MG TWICE PER DAY
     Route: 048
     Dates: start: 20060101
  6. CALCI CHEW [Concomitant]
     Indication: CALCIUM DEFICIENCY
     Route: 048
     Dates: start: 20060101
  7. FERROFUMARAAT [Concomitant]
     Indication: ANAEMIA
     Dosage: 200MG PER DAY
     Route: 048
     Dates: start: 20040803
  8. NEXIUM [Concomitant]
     Indication: PROPHYLAXIS
     Dosage: 40MG PER DAY
     Route: 048
     Dates: start: 20050101
  9. NEOMYCINE [Concomitant]
     Indication: PROPHYLAXIS
     Dosage: 500MG THREE TIMES PER DAY
     Route: 048
  10. VALACYCLOVIR HCL [Concomitant]
     Indication: ANTIBIOTIC PROPHYLAXIS
     Dosage: 500MG PER DAY
     Route: 048
     Dates: start: 20060101
  11. VITAMINE K [Concomitant]
     Indication: VITAMIN K DEFICIENCY
  12. IUD [Concomitant]
     Indication: CONTRACEPTION
  13. METOCLOPRAMIDE [Concomitant]
     Indication: NAUSEA
     Route: 048
     Dates: start: 20081101

REACTIONS (1)
  - TRANSAMINASES INCREASED [None]
